FAERS Safety Report 5147748-1 (Version None)
Quarter: 2006Q4

REPORT INFORMATION
  Report Type: 
  Country: None (occurrence: None)
  Receive Date: 20061110
  Receipt Date: 20061101
  Transmission Date: 20070319
  Serious: Yes (Disabling)
  Sender: FDA-Public Use
  Company Number: GBWYE390601NOV06

PATIENT
  Sex: Male
  Weight: 64 kg

DRUGS (8)
  1. ENBREL [Suspect]
     Indication: SPONDYLITIS
     Route: 058
     Dates: start: 20041015, end: 20060601
  2. ACETAMINOPHEN W/ CODEINE [Concomitant]
     Dosage: UNKNOWN
  3. TRAMADOL HCL [Concomitant]
     Dosage: UNKNOWN
  4. FOLIC ACID [Concomitant]
     Dosage: UNKNOWN
  5. FOLIC ACID [Concomitant]
     Dosage: UNKNOWN
  6. LEVOTHYROXINE SODIUM [Concomitant]
     Dosage: UNKNOWN
  7. METHOTREXATE [Concomitant]
     Dosage: UNKNOWN
  8. DICLOFENAC [Concomitant]
     Dosage: UNKNOWN

REACTIONS (1)
  - UVEITIS [None]
